FAERS Safety Report 6611695-6 (Version None)
Quarter: 2010Q1

REPORT INFORMATION
  Report Type: 
  Country: None (occurrence: None)
  Receive Date: 20100226
  Receipt Date: 20100226
  Transmission Date: 20100710
  Serious: Yes (Other)
  Sender: FDA-Public Use
  Company Number: None

PATIENT
  Age: 12 Year
  Sex: Male
  Weight: 36.5 kg

DRUGS (3)
  1. ONCASPAR [Suspect]
     Indication: ACUTE LYMPHOCYTIC LEUKAEMIA
     Dosage: 2850 IU OVER 2 HR -2500MG/M2- ONCE IV
     Route: 042
     Dates: start: 20100210, end: 20100210
  2. PEG-ASP LOT #9061A [Concomitant]
  3. PEG-ASP LOT # 9066A [Concomitant]

REACTIONS (2)
  - DRUG HYPERSENSITIVITY [None]
  - INFUSION RELATED REACTION [None]
